FAERS Safety Report 20678554 (Version 16)
Quarter: 2024Q4

REPORT INFORMATION
  Report Type: Report from Study
  Country: US (occurrence: US)
  Receive Date: 20220406
  Receipt Date: 20241126
  Transmission Date: 20250114
  Serious: Yes (Hospitalization, Other)
  Sender: NOVARTIS
  Company Number: US-NOVARTISPH-NVSC2022US076715

PATIENT
  Age: 0 Year
  Sex: Male
  Weight: 6.83 kg

DRUGS (20)
  1. ZOLGENSMA [Suspect]
     Active Substance: ONASEMNOGENE ABEPARVOVEC-XIOI
     Indication: Spinal muscular atrophy
     Dosage: 1.1 10E14 VG/KG, ONCE/SINGLE
     Route: 042
     Dates: start: 20220317
  2. SODIUM POLYSTYRENE SULFONATE [Concomitant]
     Active Substance: SODIUM POLYSTYRENE SULFONATE
     Indication: Product used for unknown indication
     Dosage: 1 DOSAGE FORM, (159/60 ML)
     Route: 065
     Dates: start: 20220323, end: 20220323
  3. PREDNISOLONE [Concomitant]
     Active Substance: PREDNISOLONE
     Indication: Product used for unknown indication
     Dosage: 2 MG/KG
     Route: 065
     Dates: start: 20220316, end: 20220323
  4. PREDNISOLONE [Concomitant]
     Active Substance: PREDNISOLONE
     Dosage: 2 MG/KG
     Route: 065
     Dates: start: 20220328
  5. PREDNISOLONE [Concomitant]
     Active Substance: PREDNISOLONE
     Dosage: 10.08 MG
     Route: 065
     Dates: start: 20220328, end: 20220420
  6. PREDNISOLONE [Concomitant]
     Active Substance: PREDNISOLONE
     Dosage: 26.55 MG
     Route: 065
     Dates: start: 20220420, end: 20220427
  7. PREDNISOLONE [Concomitant]
     Active Substance: PREDNISOLONE
     Dosage: 27.33 MG
     Route: 065
     Dates: start: 20220503, end: 20220509
  8. PREDNISOLONE [Concomitant]
     Active Substance: PREDNISOLONE
     Dosage: 30 MG
     Route: 065
     Dates: start: 20220509, end: 20220518
  9. PREDNISOLONE [Concomitant]
     Active Substance: PREDNISOLONE
     Dosage: 30 MG
     Route: 065
     Dates: start: 20220523, end: 20220606
  10. PREDNISOLONE [Concomitant]
     Active Substance: PREDNISOLONE
     Dosage: 32.67 MG
     Route: 065
     Dates: start: 20220606, end: 20220728
  11. PREDNISOLONE [Concomitant]
     Active Substance: PREDNISOLONE
     Dosage: 30.81 MG
     Route: 065
     Dates: start: 20220728, end: 20220803
  12. PREDNISOLONE [Concomitant]
     Active Substance: PREDNISOLONE
     Dosage: 30 MG
     Route: 065
     Dates: start: 20220803, end: 20220928
  13. PREDNISOLONE [Concomitant]
     Active Substance: PREDNISOLONE
     Dosage: 21 MG
     Route: 065
     Dates: start: 20220928, end: 20221019
  14. PREDNISOLONE [Concomitant]
     Active Substance: PREDNISOLONE
     Dosage: 10.8 MG
     Route: 065
     Dates: start: 20221019, end: 20221116
  15. PREDNISOLONE [Concomitant]
     Active Substance: PREDNISOLONE
     Dosage: 5.4 MG
     Route: 065
     Dates: start: 20221116, end: 20221221
  16. PREDNISOLONE [Concomitant]
     Active Substance: PREDNISOLONE
     Dosage: 3 MG
     Route: 065
     Dates: start: 20221221, end: 20230202
  17. PREDNISOLONE [Concomitant]
     Active Substance: PREDNISOLONE
     Dosage: 0.5 ML (CONCENTRATION 3 MG/ML)
     Route: 065
     Dates: start: 20230202, end: 20230209
  18. PREDNISOLONE [Concomitant]
     Active Substance: PREDNISOLONE
     Dosage: 0.3 ML (CONCENTRATION 3 MG/ML)
     Route: 065
     Dates: start: 20230209, end: 20230216
  19. PREDNISOLONE [Concomitant]
     Active Substance: PREDNISOLONE
     Dosage: 0.2 ML (CONCENTRATION 3 MG/ML)
     Route: 065
     Dates: start: 20230216, end: 20230223
  20. PREDNISOLONE [Concomitant]
     Active Substance: PREDNISOLONE
     Dosage: 0.1 ML (CONCENTRATION 3 MG/ML)
     Route: 065
     Dates: start: 20230223, end: 20230302

REACTIONS (9)
  - Alanine aminotransferase increased [Recovered/Resolved]
  - Aspartate aminotransferase increased [Recovered/Resolved]
  - Aspartate aminotransferase increased [Recovered/Resolved with Sequelae]
  - Alanine aminotransferase increased [Recovered/Resolved with Sequelae]
  - Hyperkalaemia [Recovered/Resolved]
  - Troponin I increased [Recovered/Resolved]
  - Alanine aminotransferase increased [Recovered/Resolved]
  - Aspartate aminotransferase increased [Recovered/Resolved]
  - Troponin I increased [Recovered/Resolved]

NARRATIVE: CASE EVENT DATE: 20220323
